FAERS Safety Report 6770887-6 (Version None)
Quarter: 2010Q2

REPORT INFORMATION
  Report Type: 
  Country: None (occurrence: None)
  Receive Date: 20100615
  Receipt Date: 20100609
  Transmission Date: 20101027
  Serious: Yes (Death)
  Sender: FDA-Public Use
  Company Number: US-AMGEN-QUU417306

PATIENT
  Sex: Female

DRUGS (4)
  1. NPLATE [Suspect]
     Indication: IDIOPATHIC THROMBOCYTOPENIC PURPURA
     Dates: start: 20100319
  2. RHOGAM [Concomitant]
  3. CORTICOSTEROIDS [Concomitant]
     Dates: start: 20100309
  4. IMMU-G [Concomitant]
     Route: 042
     Dates: start: 20100308

REACTIONS (1)
  - DEATH [None]
